FAERS Safety Report 5128033-0 (Version None)
Quarter: 2006Q4

REPORT INFORMATION
  Report Type: 
  Country: None (occurrence: None)
  Receive Date: 20061010
  Receipt Date: 20060926
  Transmission Date: 20070319
  Serious: Yes (Other)
  Sender: FDA-Public Use
  Company Number: 2006117135

PATIENT
  Sex: Female

DRUGS (2)
  1. FOSPHENYTOIN SODIUM [Suspect]
  2. ANTIEPILEPTICS (ANTIEPILEPTICS) [Concomitant]

REACTIONS (1)
  - ANAEMIA HAEMOLYTIC AUTOIMMUNE [None]
